FAERS Safety Report 5515922-8 (Version None)
Quarter: 2007Q4

REPORT INFORMATION
  Report Type: 
  Country: None (occurrence: None)
  Receive Date: 20071109
  Receipt Date: 20071029
  Transmission Date: 20080405
  Serious: Yes (Hospitalization, Other)
  Sender: FDA-Public Use
  Company Number: 2007VX002667

PATIENT
  Age: 54 Year
  Sex: Male

DRUGS (2)
  1. PERMAX [Suspect]
  2. RAMIPRIL [Concomitant]

REACTIONS (3)
  - ACCIDENTAL EXPOSURE [None]
  - CIRCULATORY COLLAPSE [None]
  - HYPOTENSION [None]
